FAERS Safety Report 6493542-9 (Version None)
Quarter: 2009Q4

REPORT INFORMATION
  Report Type: 
  Country: None (occurrence: None)
  Receive Date: 20091209
  Receipt Date: 20091124
  Transmission Date: 20100525
  Serious: Yes (Life-Threatening, Hospitalization)
  Sender: FDA-Public Use
  Company Number: DSM-2009-00254

PATIENT
  Age: 89 Year
  Sex: Male

DRUGS (7)
  1. AMLODIPINE BESYLATE AND OLMESARTAN MEDOXOMIL [Suspect]
     Indication: HYPERTENSION
     Dosage: 40MG/5MG, ORAL
     Route: 048
     Dates: start: 20090203, end: 20090305
  2. AMIODARONE [Concomitant]
  3. BISOPROLOL FUMARATE [Concomitant]
  4. TORSEMIDE [Concomitant]
  5. MARCUMAR [Concomitant]
  6. BUDESONIDE [Concomitant]
  7. FORMOTEROL [Concomitant]

REACTIONS (5)
  - ATRIOVENTRICULAR BLOCK FIRST DEGREE [None]
  - BIFASCICULAR BLOCK [None]
  - HYPOTENSION [None]
  - SINUS BRADYCARDIA [None]
  - SYNCOPE [None]
